FAERS Safety Report 19440955 (Version 1)
Quarter: 2021Q2

REPORT INFORMATION
  Report Type: Spontaneous
  Country: US (occurrence: US)
  Receive Date: 20210621
  Receipt Date: 20210621
  Transmission Date: 20210717
  Serious: Yes (Life-Threatening, Hospitalization, Other)
  Sender: FDA-Public Use
  Company Number: US-EPICPHARMA-US-2021EPCLIT00636

PATIENT
  Age: 18 Year
  Sex: Female

DRUGS (12)
  1. CARVEDILOL. [Suspect]
     Active Substance: CARVEDILOL
     Indication: PRODUCT USED FOR UNKNOWN INDICATION
     Dosage: 30 TABS
     Route: 048
  2. CALCIUM GLUCONATE. [Interacting]
     Active Substance: CALCIUM GLUCONATE
     Indication: SUPPORTIVE CARE
     Route: 065
  3. PHENYLEPHRINE [Interacting]
     Active Substance: PHENYLEPHRINE HYDROCHLORIDE
     Indication: SUPPORTIVE CARE
     Route: 065
  4. AMLODIPINE BESYLATE. [Suspect]
     Active Substance: AMLODIPINE BESYLATE
     Indication: PRODUCT USED FOR UNKNOWN INDICATION
     Route: 048
  5. FUROSEMIDE. [Suspect]
     Active Substance: FUROSEMIDE
     Indication: PRODUCT USED FOR UNKNOWN INDICATION
     Dosage: 30 TABLETS
     Route: 048
  6. VASOPRESSIN. [Interacting]
     Active Substance: VASOPRESSIN
     Indication: SUPPORTIVE CARE
     Dosage: PER MINUTE
     Route: 065
  7. NITROUS OXIDE. [Interacting]
     Active Substance: NITROUS OXIDE
     Indication: SUPPORTIVE CARE
     Dosage: PER HOUR
     Route: 065
  8. PROPOFOL. [Interacting]
     Active Substance: PROPOFOL
     Indication: SUPPORTIVE CARE
     Route: 065
  9. HYDROCHLOROTHIAZIDE. [Suspect]
     Active Substance: HYDROCHLOROTHIAZIDE
     Indication: PRODUCT USED FOR UNKNOWN INDICATION
     Route: 048
  10. NOREPINEPHRINE. [Interacting]
     Active Substance: NOREPINEPHRINE
     Indication: SUPPORTIVE CARE
     Dosage: PER KG/PER MIN
     Route: 065
  11. ANGIOTENSIN II [Interacting]
     Active Substance: ANGIOTENSIN II
     Indication: SUPPORTIVE CARE
     Dosage: PER KG/PER MIUTE
     Route: 065
  12. INSULIN [Interacting]
     Active Substance: INSULIN NOS
     Indication: PRODUCT USED FOR UNKNOWN INDICATION
     Route: 065

REACTIONS (4)
  - Cardiogenic shock [Recovered/Resolved]
  - Distributive shock [Recovered/Resolved]
  - Toxicity to various agents [Recovered/Resolved]
  - Overdose [Unknown]
